FAERS Safety Report 6055204-1 (Version None)
Quarter: 2009Q1

REPORT INFORMATION
  Report Type: 
  Country: None (occurrence: None)
  Receive Date: 20090123
  Receipt Date: 20090109
  Transmission Date: 20090719
  Serious: Yes (Disabling)
  Sender: FDA-Public Use
  Company Number: APP200900012

PATIENT
  Age: 80 Year
  Sex: Male
  Weight: 71.6683 kg

DRUGS (6)
  1. GENTAMICIN INJECTION,             USP (GENTAMICIN SULFATE) [Suspect]
     Indication: PERITONITIS
     Dosage: 40 MG, INSTILLED INTO DIALYZING
     Dates: start: 20081201
  2. HYDRALAZINE HCL [Concomitant]
  3. GLIPIZIDE [Concomitant]
  4. LASIX [Concomitant]
  5. POTASSIUM (POTASSIUM) [Concomitant]
  6. ANTIHYPERTENSIVE MEDICATION (UNSPECIFIED) (ANTIHYPERTENSIVES) [Concomitant]

REACTIONS (1)
  - ATAXIA [None]
